FAERS Safety Report 17090133 (Version 1)
Quarter: 2019Q4

REPORT INFORMATION
  Report Type: Spontaneous
  Country: US (occurrence: US)
  Receive Date: 20191031
  Receipt Date: 20191031
  Transmission Date: 20200122
  Serious: Yes (Hospitalization)
  Sender: FDA-Public Use
  Company Number: None

PATIENT
  Sex: Male

DRUGS (5)
  1. FOLIC ACID. [Concomitant]
     Active Substance: FOLIC ACID
  2. FAMOTIDINE. [Concomitant]
     Active Substance: FAMOTIDINE
  3. STELARA [Suspect]
     Active Substance: USTEKINUMAB
     Indication: CROHN^S DISEASE
     Dosage: ?          OTHER FREQUENCY:Q8WKS;?
     Route: 058
     Dates: start: 20180608
  4. DILTIAZEM. [Concomitant]
     Active Substance: DILTIAZEM
  5. METOPROL TAR [Concomitant]

REACTIONS (2)
  - Pruritus [None]
  - Nausea [None]
